FAERS Safety Report 17361000 (Version 2)
Quarter: 2020Q1

REPORT INFORMATION
  Report Type: Spontaneous
  Country: US (occurrence: US)
  Receive Date: 20200203
  Receipt Date: 20200224
  Transmission Date: 20200409
  Serious: No
  Sender: FDA-Public Use
  Company Number: US-SA-2020SA024172

PATIENT
  Age: 12 Year
  Sex: Female

DRUGS (1)
  1. DUPIXENT [Suspect]
     Active Substance: DUPILUMAB
     Indication: DERMATITIS ATOPIC
     Dosage: 300 MG, BID
     Route: 058
     Dates: start: 20181115, end: 20191213

REACTIONS (6)
  - Malaise [Unknown]
  - Scratch [Unknown]
  - Product use issue [Unknown]
  - Productive cough [Unknown]
  - Skin haemorrhage [Unknown]
  - Sputum discoloured [Unknown]

NARRATIVE: CASE EVENT DATE: 20181115
